FAERS Safety Report 23088759 (Version 1)
Quarter: 2023Q4

REPORT INFORMATION
  Report Type: Spontaneous
  Country: US (occurrence: None)
  Receive Date: 20231019
  Receipt Date: 20231019
  Transmission Date: 20240110
  Serious: No
  Sender: FDA-Public Use
  Company Number: None

PATIENT
  Sex: Female

DRUGS (2)
  1. AMBRISENTAN [Suspect]
     Active Substance: AMBRISENTAN
     Dates: start: 20190520
  2. AMBRISENTAN [Concomitant]
     Active Substance: AMBRISENTAN
     Dates: start: 20190520

REACTIONS (3)
  - Product dose omission in error [None]
  - Nasal congestion [None]
  - Hypertension [None]
